FAERS Safety Report 5921876-2 (Version None)
Quarter: 2008Q4

REPORT INFORMATION
  Report Type: 
  Country: None (occurrence: None)
  Receive Date: 20081017
  Receipt Date: 20081006
  Transmission Date: 20090506
  Serious: Yes (Hospitalization)
  Sender: FDA-Public Use
  Company Number: US-ROCHE-589819

PATIENT
  Sex: Male
  Weight: 78 kg

DRUGS (2)
  1. CAPECITABINE [Suspect]
     Indication: DRUG USE FOR UNKNOWN INDICATION
     Dosage: INDICATION REPORTED AS: OTHER.
     Route: 065
  2. TARCEVA [Concomitant]

REACTIONS (1)
  - COLON NEOPLASM [None]
